FAERS Safety Report 5603223-9 (Version None)
Quarter: 2008Q1

REPORT INFORMATION
  Report Type: 
  Country: None (occurrence: None)
  Receive Date: 20080123
  Receipt Date: 20080108
  Transmission Date: 20080703
  Serious: Yes (Other)
  Sender: FDA-Public Use
  Company Number: B0503521A

PATIENT
  Age: 23 Year
  Sex: Male

DRUGS (2)
  1. LAMOTRIGINE [Suspect]
     Indication: SCHIZOPHRENIA, PARANOID TYPE
     Dosage: 150 MG / PER DAY /
  2. RISPERIDONE [Concomitant]

REACTIONS (1)
  - SCHIZOPHRENIA, PARANOID TYPE [None]
